FAERS Safety Report 15466918 (Version 1)
Quarter: 2018Q4

REPORT INFORMATION
  Report Type: Spontaneous
  Country: AU (occurrence: AU)
  Receive Date: 20181005
  Receipt Date: 20181005
  Transmission Date: 20190204
  Serious: Yes (Other)
  Sender: FDA-Public Use
  Company Number: AU-EMD SERONO-9042973

PATIENT
  Age: 16 Year
  Sex: Female

DRUGS (1)
  1. REBIF [Suspect]
     Active Substance: INTERFERON BETA-1A
     Indication: PRODUCT USED FOR UNKNOWN INDICATION
     Dates: start: 2009, end: 201101

REACTIONS (11)
  - Ataxia [Unknown]
  - Depressed mood [Unknown]
  - Impaired work ability [Unknown]
  - Hypoaesthesia [Unknown]
  - Micturition urgency [Unknown]
  - Treatment noncompliance [Unknown]
  - Optic neuritis [Unknown]
  - Central nervous system lesion [Unknown]
  - Diplopia [Unknown]
  - Fatigue [Unknown]
  - Memory impairment [Unknown]

NARRATIVE: CASE EVENT DATE: 2009
